FAERS Safety Report 12220813 (Version 1)
Quarter: 2016Q1

REPORT INFORMATION
  Report Type: Spontaneous
  Country: US (occurrence: None)
  Receive Date: 20160324
  Receipt Date: 20160324
  Transmission Date: 20160526
  Serious: No
  Sender: FDA-Public Use
  Company Number: None

PATIENT
  Sex: Male

DRUGS (2)
  1. CARTEOLOL [Suspect]
     Active Substance: CARTEOLOL
  2. OCUPRESS [Suspect]
     Active Substance: CARTEOLOL HYDROCHLORIDE

REACTIONS (1)
  - Blindness unilateral [None]
